FAERS Safety Report 10238129 (Version 2)
Quarter: 2015Q1

REPORT INFORMATION
  Report Type: Report from Study
  Country: US (occurrence: US)
  Receive Date: 20140616
  Receipt Date: 20150214
  Transmission Date: 20150720
  Serious: Yes (Other)
  Sender: FDA-Public Use
  Company Number: PHEH2014US011865

PATIENT
  Sex: Female
  Weight: 107 kg

DRUGS (1)
  1. EXJADE [Suspect]
     Active Substance: DEFERASIROX
     Indication: MYELODYSPLASTIC SYNDROME
     Dosage: 1000 MG, DAILY
     Route: 048
     Dates: start: 201305

REACTIONS (3)
  - Incorrect dosage administered [Unknown]
  - Jaundice [Unknown]
  - Urinary tract infection [Unknown]
